FAERS Safety Report 22309821 (Version 1)
Quarter: 2023Q2

REPORT INFORMATION
  Report Type: Spontaneous
  Country: US (occurrence: None)
  Receive Date: 20230510
  Receipt Date: 20230510
  Transmission Date: 20230722
  Serious: Yes (Congenital Anomaly)
  Sender: FDA-Public Use
  Company Number: None

PATIENT
  Age: 31 Year
  Sex: Female
  Weight: 69.75 kg

DRUGS (2)
  1. ZITHROMAX [Suspect]
     Active Substance: AZITHROMYCIN DIHYDRATE
     Indication: Atypical pneumonia
  2. pre-natal vitamin [Concomitant]

REACTIONS (3)
  - Hypospadias [None]
  - Maternal exposure during pregnancy [None]
  - Foetal exposure during pregnancy [None]
